FAERS Safety Report 19850502 (Version 3)
Quarter: 2022Q1

REPORT INFORMATION
  Report Type: Report from Study
  Country: US (occurrence: US)
  Receive Date: 20210918
  Receipt Date: 20220115
  Transmission Date: 20220424
  Serious: Yes (Death, Hospitalization, Other)
  Sender: FDA-Public Use
  Company Number: US-REGENERON PHARMACEUTICALS, INC.-2021-84690

PATIENT
  Age: 73 Year
  Sex: Male

DRUGS (1)
  1. CASIRIVIMAB\IMDEVIMAB [Suspect]
     Active Substance: CASIRIVIMAB\IMDEVIMAB
     Indication: COVID-19
     Dosage: 600/600 MG, SINGLE
     Route: 042
     Dates: start: 20210905, end: 20210905

REACTIONS (4)
  - Hypotension [Fatal]
  - Pneumonia [Fatal]
  - Pyelonephritis [Fatal]
  - Sepsis [Fatal]

NARRATIVE: CASE EVENT DATE: 20210905
